FAERS Safety Report 10897167 (Version 3)
Quarter: 2015Q3

REPORT INFORMATION
  Report Type: Spontaneous
  Country: US (occurrence: US)
  Receive Date: 20150309
  Receipt Date: 20150702
  Transmission Date: 20151125
  Serious: No
  Sender: FDA-Public Use
  Company Number: US-PFIZER INC-2015080250

PATIENT
  Age: 83 Year
  Sex: Female

DRUGS (2)
  1. IODINE [Suspect]
     Active Substance: IODINE
     Dosage: UNK
  2. LEVOXYL [Suspect]
     Active Substance: LEVOTHYROXINE SODIUM
     Indication: THYROID HORMONE REPLACEMENT THERAPY
     Dosage: 50 ?G, 2X/DAY
     Dates: start: 1995

REACTIONS (2)
  - Reaction to drug excipients [Unknown]
  - Malaise [Unknown]
